FAERS Safety Report 23084939 (Version 10)
Quarter: 2025Q3

REPORT INFORMATION
  Report Type: Spontaneous
  Country: CA (occurrence: CA)
  Receive Date: 20231019
  Receipt Date: 20250924
  Transmission Date: 20251021
  Serious: Yes (Hospitalization, Other)
  Sender: SANDOZ
  Company Number: CA-002147023-NVSC2023CA023717

PATIENT
  Age: 75 Year
  Sex: Female
  Weight: 70 kg

DRUGS (253)
  1. AMOXICILLIN [Suspect]
     Active Substance: AMOXICILLIN
     Indication: Sinusitis
     Route: 065
  2. AMOXICILLIN [Suspect]
     Active Substance: AMOXICILLIN
     Route: 065
  3. AMOXICILLIN TRIHYDRATE [Suspect]
     Active Substance: AMOXICILLIN
     Indication: Sinusitis
     Route: 065
  4. ATORVASTATIN [Suspect]
     Active Substance: ATORVASTATIN
     Route: 065
  5. ATORVASTATIN [Suspect]
     Active Substance: ATORVASTATIN
     Indication: Dyslipidaemia
     Route: 065
  6. ATORVASTATIN [Suspect]
     Active Substance: ATORVASTATIN
     Indication: Dyslipidaemia
     Route: 065
  7. ATORVASTATIN CALCIUM [Suspect]
     Active Substance: ATORVASTATIN CALCIUM
     Indication: Dyslipidaemia
     Route: 065
  8. ATORVASTATIN CALCIUM [Suspect]
     Active Substance: ATORVASTATIN CALCIUM
     Route: 065
  9. ATORVASTATIN CALCIUM [Suspect]
     Active Substance: ATORVASTATIN CALCIUM
     Route: 065
  10. ATORVASTATIN CALCIUM [Suspect]
     Active Substance: ATORVASTATIN CALCIUM
     Route: 065
  11. ATORVASTATIN CALCIUM [Suspect]
     Active Substance: ATORVASTATIN CALCIUM
     Indication: Dyslipidaemia
     Route: 065
  12. ATORVASTATIN CALCIUM [Suspect]
     Active Substance: ATORVASTATIN CALCIUM
     Route: 065
  13. ATORVASTATIN CALCIUM [Suspect]
     Active Substance: ATORVASTATIN CALCIUM
     Route: 065
  14. ATORVASTATIN CALCIUM [Suspect]
     Active Substance: ATORVASTATIN CALCIUM
     Route: 065
  15. ACETAMINOPHEN [Suspect]
     Active Substance: ACETAMINOPHEN
     Indication: Product used for unknown indication
     Route: 065
  16. ACETAMINOPHEN [Suspect]
     Active Substance: ACETAMINOPHEN
     Indication: Rhinitis
     Route: 065
  17. ACETAMINOPHEN [Suspect]
     Active Substance: ACETAMINOPHEN
     Route: 065
  18. ACETAMINOPHEN [Suspect]
     Active Substance: ACETAMINOPHEN
     Route: 065
  19. ACETAMINOPHEN [Suspect]
     Active Substance: ACETAMINOPHEN
     Route: 065
  20. ACETAMINOPHEN [Suspect]
     Active Substance: ACETAMINOPHEN
     Route: 065
  21. ACETAMINOPHEN [Suspect]
     Active Substance: ACETAMINOPHEN
     Route: 065
  22. ACETAMINOPHEN [Suspect]
     Active Substance: ACETAMINOPHEN
     Route: 065
  23. ACETAMINOPHEN [Suspect]
     Active Substance: ACETAMINOPHEN
     Route: 065
  24. ADVIL [Suspect]
     Active Substance: IBUPROFEN
     Indication: Arthralgia
     Route: 065
  25. ADVIL [Suspect]
     Active Substance: IBUPROFEN
     Route: 065
  26. AZOPT [Suspect]
     Active Substance: BRINZOLAMIDE
     Indication: Glaucoma
     Route: 047
  27. BRINZOLAMIDE [Suspect]
     Active Substance: BRINZOLAMIDE
     Route: 047
  28. BRINZOLAMIDE [Suspect]
     Active Substance: BRINZOLAMIDE
     Route: 065
  29. BRINZOLAMIDE [Suspect]
     Active Substance: BRINZOLAMIDE
     Route: 047
  30. BRINZOLAMIDE [Suspect]
     Active Substance: BRINZOLAMIDE
     Indication: Glaucoma
     Route: 065
  31. BRINZOLAMIDE\TIMOLOL [Suspect]
     Active Substance: BRINZOLAMIDE\TIMOLOL
     Indication: Glaucoma
     Route: 047
  32. BRINZOLAMIDE\TIMOLOL [Suspect]
     Active Substance: BRINZOLAMIDE\TIMOLOL
     Route: 047
  33. BRINZOLAMIDE\TIMOLOL [Suspect]
     Active Substance: BRINZOLAMIDE\TIMOLOL
     Route: 047
  34. BRINZOLAMIDE\TIMOLOL [Suspect]
     Active Substance: BRINZOLAMIDE\TIMOLOL
     Route: 047
  35. BRINZOLAMIDE\TIMOLOL [Suspect]
     Active Substance: BRINZOLAMIDE\TIMOLOL
     Route: 047
  36. BRINZOLAMIDE\TIMOLOL [Suspect]
     Active Substance: BRINZOLAMIDE\TIMOLOL
     Indication: Glaucoma
     Route: 065
  37. BRINZOLAMIDE\TIMOLOL [Suspect]
     Active Substance: BRINZOLAMIDE\TIMOLOL
     Route: 065
  38. BRINZOLAMIDE\TIMOLOL [Suspect]
     Active Substance: BRINZOLAMIDE\TIMOLOL
     Route: 065
  39. BRINZOLAMIDE\TIMOLOL [Suspect]
     Active Substance: BRINZOLAMIDE\TIMOLOL
     Route: 065
  40. BRINZOLAMIDE\TIMOLOL [Suspect]
     Active Substance: BRINZOLAMIDE\TIMOLOL
     Route: 065
  41. BRINZOLAMIDE\TIMOLOL [Suspect]
     Active Substance: BRINZOLAMIDE\TIMOLOL
     Route: 031
  42. BRINZOLAMIDE\TIMOLOL [Suspect]
     Active Substance: BRINZOLAMIDE\TIMOLOL
     Route: 047
  43. BRINZOLAMIDE\TIMOLOL [Suspect]
     Active Substance: BRINZOLAMIDE\TIMOLOL
     Route: 047
  44. BRINZOLAMIDE\TIMOLOL [Suspect]
     Active Substance: BRINZOLAMIDE\TIMOLOL
     Route: 047
  45. BRINZOLAMIDE\TIMOLOL [Suspect]
     Active Substance: BRINZOLAMIDE\TIMOLOL
     Route: 047
  46. BRINZOLAMIDE\TIMOLOL [Suspect]
     Active Substance: BRINZOLAMIDE\TIMOLOL
     Route: 047
  47. BRINZOLAMIDE\TIMOLOL [Suspect]
     Active Substance: BRINZOLAMIDE\TIMOLOL
     Route: 047
  48. BRINZOLAMIDE\TIMOLOL [Suspect]
     Active Substance: BRINZOLAMIDE\TIMOLOL
     Indication: Glaucoma
     Route: 065
  49. BRINZOLAMIDE\TIMOLOL [Suspect]
     Active Substance: BRINZOLAMIDE\TIMOLOL
     Route: 065
  50. BRINZOLAMIDE\TIMOLOL [Suspect]
     Active Substance: BRINZOLAMIDE\TIMOLOL
     Route: 065
  51. BRINZOLAMIDE\TIMOLOL [Suspect]
     Active Substance: BRINZOLAMIDE\TIMOLOL
     Route: 065
  52. BRINZOLAMIDE\TIMOLOL [Suspect]
     Active Substance: BRINZOLAMIDE\TIMOLOL
     Route: 065
  53. BRINZOLAMIDE\TIMOLOL [Suspect]
     Active Substance: BRINZOLAMIDE\TIMOLOL
     Route: 065
  54. BRINZOLAMIDE\TIMOLOL [Suspect]
     Active Substance: BRINZOLAMIDE\TIMOLOL
     Route: 065
  55. BRINZOLAMIDE\TIMOLOL [Suspect]
     Active Substance: BRINZOLAMIDE\TIMOLOL
     Indication: Glaucoma
     Route: 047
  56. BRINZOLAMIDE\TIMOLOL [Suspect]
     Active Substance: BRINZOLAMIDE\TIMOLOL
     Route: 047
  57. BRINZOLAMIDE\TIMOLOL [Suspect]
     Active Substance: BRINZOLAMIDE\TIMOLOL
     Route: 047
  58. BRINZOLAMIDE\TIMOLOL [Suspect]
     Active Substance: BRINZOLAMIDE\TIMOLOL
     Route: 047
  59. BRINZOLAMIDE\TIMOLOL [Suspect]
     Active Substance: BRINZOLAMIDE\TIMOLOL
     Indication: Glaucoma
     Route: 065
  60. BRINZOLAMIDE\TIMOLOL [Suspect]
     Active Substance: BRINZOLAMIDE\TIMOLOL
     Route: 065
  61. BRINZOLAMIDE\TIMOLOL [Suspect]
     Active Substance: BRINZOLAMIDE\TIMOLOL
     Route: 065
  62. BRINZOLAMIDE\TIMOLOL [Suspect]
     Active Substance: BRINZOLAMIDE\TIMOLOL
     Route: 047
  63. BRINZOLAMIDE\TIMOLOL [Suspect]
     Active Substance: BRINZOLAMIDE\TIMOLOL
     Route: 047
  64. CALCIUM CARBONATE [Suspect]
     Active Substance: CALCIUM CARBONATE
     Indication: Product used for unknown indication
     Route: 065
  65. CALCIUM CARBONATE [Suspect]
     Active Substance: CALCIUM CARBONATE
     Route: 065
  66. CALCIUM CARBONATE [Suspect]
     Active Substance: CALCIUM CARBONATE
     Route: 065
  67. CALCIUM CARBONATE [Suspect]
     Active Substance: CALCIUM CARBONATE
     Route: 065
  68. CALCIUM CARBONATE [Suspect]
     Active Substance: CALCIUM CARBONATE
     Route: 065
  69. CHOLECALCIFEROL [Suspect]
     Active Substance: CHOLECALCIFEROL
     Indication: Product used for unknown indication
     Route: 065
  70. CHOLECALCIFEROL [Suspect]
     Active Substance: CHOLECALCIFEROL
     Route: 065
  71. CALCIUM CARBONATE\MAGNESIUM CARBONATE\MAGNESIUM TRISILICATE [Suspect]
     Active Substance: CALCIUM CARBONATE\MAGNESIUM CARBONATE\MAGNESIUM TRISILICATE
     Indication: Product used for unknown indication
     Route: 065
  72. CLONAZEPAM [Suspect]
     Active Substance: CLONAZEPAM
     Indication: Product used for unknown indication
     Route: 065
  73. CLONAZEPAM [Suspect]
     Active Substance: CLONAZEPAM
     Route: 065
  74. CLONAZEPAM [Suspect]
     Active Substance: CLONAZEPAM
     Route: 065
  75. CLONAZEPAM [Suspect]
     Active Substance: CLONAZEPAM
     Route: 065
  76. CLONAZEPAM [Suspect]
     Active Substance: CLONAZEPAM
     Route: 065
  77. CLONAZEPAM [Suspect]
     Active Substance: CLONAZEPAM
     Route: 065
  78. CLONAZEPAM [Suspect]
     Active Substance: CLONAZEPAM
     Route: 065
  79. DICLOFENAC [Suspect]
     Active Substance: DICLOFENAC
     Indication: Product used for unknown indication
     Route: 047
  80. DICLOFENAC [Suspect]
     Active Substance: DICLOFENAC
     Indication: Arthralgia
     Route: 065
  81. DICLOFENAC [Suspect]
     Active Substance: DICLOFENAC
     Route: 065
  82. DICLOFENAC SODIUM [Suspect]
     Active Substance: DICLOFENAC SODIUM
     Route: 047
  83. DICLOFENAC SODIUM [Suspect]
     Active Substance: DICLOFENAC SODIUM
     Indication: Arthralgia
     Route: 065
  84. DICLOFENAC SODIUM [Suspect]
     Active Substance: DICLOFENAC SODIUM
     Route: 065
  85. DICLOFENAC SODIUM [Suspect]
     Active Substance: DICLOFENAC SODIUM
     Route: 065
  86. DICLOFENAC SODIUM [Suspect]
     Active Substance: DICLOFENAC SODIUM
     Route: 047
  87. DICLOFENAC SODIUM [Suspect]
     Active Substance: DICLOFENAC SODIUM
     Route: 065
  88. DEXPANTHENOL [Suspect]
     Active Substance: DEXPANTHENOL
     Indication: Product used for unknown indication
     Route: 065
  89. ESTRADIOL [Suspect]
     Active Substance: ESTRADIOL
     Indication: Arthralgia
     Route: 065
  90. ESTRADIOL [Suspect]
     Active Substance: ESTRADIOL
     Indication: Menopausal symptoms
     Route: 065
  91. ESTRADIOL [Suspect]
     Active Substance: ESTRADIOL
     Route: 065
  92. ESTRADIOL [Suspect]
     Active Substance: ESTRADIOL
     Route: 065
  93. ESTRADIOL [Suspect]
     Active Substance: ESTRADIOL
     Route: 065
  94. ESTRADIOL [Suspect]
     Active Substance: ESTRADIOL
     Route: 065
  95. ERGOCALCIFEROL [Suspect]
     Active Substance: ERGOCALCIFEROL
     Indication: Product used for unknown indication
     Route: 065
  96. FOLIC ACID [Suspect]
     Active Substance: FOLIC ACID
     Indication: Product used for unknown indication
     Route: 065
  97. GABAPENTIN [Suspect]
     Active Substance: GABAPENTIN
     Indication: Arthralgia
     Route: 065
  98. GABAPENTIN [Suspect]
     Active Substance: GABAPENTIN
     Route: 065
  99. GABAPENTIN [Suspect]
     Active Substance: GABAPENTIN
     Route: 065
  100. GABAPENTIN [Suspect]
     Active Substance: GABAPENTIN
     Route: 065
  101. IBUPROFEN [Suspect]
     Active Substance: IBUPROFEN
     Indication: Arthralgia
     Route: 065
  102. IBUPROFEN [Suspect]
     Active Substance: IBUPROFEN
     Indication: Product used for unknown indication
     Route: 065
  103. IBUPROFEN [Suspect]
     Active Substance: IBUPROFEN
     Route: 065
  104. IPRATROPIUM [Suspect]
     Active Substance: IPRATROPIUM
     Route: 065
  105. IPRATROPIUM [Suspect]
     Active Substance: IPRATROPIUM
     Route: 065
  106. IPRATROPIUM [Suspect]
     Active Substance: IPRATROPIUM
     Route: 065
  107. IPRATROPIUM [Suspect]
     Active Substance: IPRATROPIUM
     Route: 065
  108. IPRATROPIUM [Suspect]
     Active Substance: IPRATROPIUM
     Route: 065
  109. IPRATROPIUM [Suspect]
     Active Substance: IPRATROPIUM
     Route: 065
  110. IPRATROPIUM [Suspect]
     Active Substance: IPRATROPIUM
     Indication: Rhinitis
     Route: 045
  111. IPRATROPIUM [Suspect]
     Active Substance: IPRATROPIUM
     Route: 045
  112. IPRATROPIUM [Suspect]
     Active Substance: IPRATROPIUM
     Route: 045
  113. IPRATROPIUM [Suspect]
     Active Substance: IPRATROPIUM
     Route: 045
  114. IPRATROPIUM [Suspect]
     Active Substance: IPRATROPIUM
     Route: 045
  115. IPRATROPIUM [Suspect]
     Active Substance: IPRATROPIUM
     Route: 045
  116. IPRATROPIUM [Suspect]
     Active Substance: IPRATROPIUM
     Route: 045
  117. IPRATROPIUM [Suspect]
     Active Substance: IPRATROPIUM
     Route: 045
  118. IPRATROPIUM [Suspect]
     Active Substance: IPRATROPIUM
     Route: 045
  119. IPRATROPIUM [Suspect]
     Active Substance: IPRATROPIUM
     Route: 045
  120. IPRATROPIUM [Suspect]
     Active Substance: IPRATROPIUM
     Indication: Arthralgia
     Route: 065
  121. IPRATROPIUM [Suspect]
     Active Substance: IPRATROPIUM
     Indication: Product used for unknown indication
     Route: 045
  122. IPRATROPIUM BROMIDE [Suspect]
     Active Substance: IPRATROPIUM BROMIDE
     Indication: Rhinitis
     Route: 065
  123. IPRATROPIUM BROMIDE [Suspect]
     Active Substance: IPRATROPIUM BROMIDE
     Route: 045
  124. IPRATROPIUM BROMIDE [Suspect]
     Active Substance: IPRATROPIUM BROMIDE
     Route: 045
  125. IPRATROPIUM BROMIDE [Suspect]
     Active Substance: IPRATROPIUM BROMIDE
     Route: 045
  126. IPRATROPIUM BROMIDE [Suspect]
     Active Substance: IPRATROPIUM BROMIDE
     Route: 045
  127. LATANOPROST [Suspect]
     Active Substance: LATANOPROST
     Indication: Glaucoma
     Route: 047
  128. LATANOPROST [Suspect]
     Active Substance: LATANOPROST
     Route: 047
  129. LATANOPROST [Suspect]
     Active Substance: LATANOPROST
     Route: 047
  130. LATANOPROST [Suspect]
     Active Substance: LATANOPROST
     Route: 047
  131. LATANOPROST [Suspect]
     Active Substance: LATANOPROST
     Route: 047
  132. LATANOPROST [Suspect]
     Active Substance: LATANOPROST
     Route: 047
  133. LATANOPROST [Suspect]
     Active Substance: LATANOPROST
     Route: 047
  134. LATANOPROST [Suspect]
     Active Substance: LATANOPROST
     Route: 047
  135. LATANOPROST [Suspect]
     Active Substance: LATANOPROST
     Route: 047
  136. LATANOPROST [Suspect]
     Active Substance: LATANOPROST
     Route: 047
  137. LATANOPROST [Suspect]
     Active Substance: LATANOPROST
     Route: 047
  138. LATANOPROST [Suspect]
     Active Substance: LATANOPROST
     Route: 047
  139. LATANOPROST [Suspect]
     Active Substance: LATANOPROST
     Route: 047
  140. LATANOPROST [Suspect]
     Active Substance: LATANOPROST
     Route: 047
  141. LATANOPROST [Suspect]
     Active Substance: LATANOPROST
     Route: 047
  142. LATANOPROST [Suspect]
     Active Substance: LATANOPROST
     Route: 065
  143. NAPROXEN [Suspect]
     Active Substance: NAPROXEN
     Indication: Arthralgia
     Route: 065
  144. NICOTINAMIDE [Suspect]
     Active Substance: NIACINAMIDE
     Indication: Product used for unknown indication
     Route: 065
  145. ESTRADIOL [Suspect]
     Active Substance: ESTRADIOL
     Route: 062
  146. ESTRADIOL [Suspect]
     Active Substance: ESTRADIOL
     Indication: Menopausal symptoms
     Route: 065
  147. PREGABALIN [Suspect]
     Active Substance: PREGABALIN
     Route: 065
  148. PREGABALIN [Suspect]
     Active Substance: PREGABALIN
     Indication: Arthralgia
     Route: 065
  149. PREGABALIN [Suspect]
     Active Substance: PREGABALIN
     Route: 065
  150. PREGABALIN [Suspect]
     Active Substance: PREGABALIN
     Route: 065
  151. PREGABALIN [Suspect]
     Active Substance: PREGABALIN
     Route: 065
  152. PREGABALIN [Suspect]
     Active Substance: PREGABALIN
     Route: 065
  153. PREGABALIN [Suspect]
     Active Substance: PREGABALIN
     Route: 065
  154. PREGABALIN [Suspect]
     Active Substance: PREGABALIN
     Route: 065
  155. PREGABALIN [Suspect]
     Active Substance: PREGABALIN
     Route: 065
  156. PSEUDOEPHEDRINE [Suspect]
     Active Substance: PSEUDOEPHEDRINE
     Indication: Product used for unknown indication
     Route: 065
  157. PSEUDOEPHEDRINE HYDROCHLORIDE [Suspect]
     Active Substance: PSEUDOEPHEDRINE HYDROCHLORIDE
     Indication: Product used for unknown indication
     Route: 065
  158. PSEUDOEPHEDRINE HYDROCHLORIDE [Suspect]
     Active Substance: PSEUDOEPHEDRINE HYDROCHLORIDE
     Route: 065
  159. PSEUDOEPHEDRINE HYDROCHLORIDE [Suspect]
     Active Substance: PSEUDOEPHEDRINE HYDROCHLORIDE
     Route: 065
  160. PYRIDOXINE [Suspect]
     Active Substance: PYRIDOXINE
     Route: 065
  161. PYRIDOXINE [Suspect]
     Active Substance: PYRIDOXINE
     Indication: Rhinitis
     Route: 065
  162. PYRIDOXINE [Suspect]
     Active Substance: PYRIDOXINE
     Indication: Product used for unknown indication
     Route: 065
  163. PYRIDOXINE HYDROCHLORIDE [Suspect]
     Active Substance: PYRIDOXINE HYDROCHLORIDE
     Indication: Product used for unknown indication
     Route: 065
  164. PYRIDOXINE HYDROCHLORIDE [Suspect]
     Active Substance: PYRIDOXINE HYDROCHLORIDE
     Route: 065
  165. PYRIDOXINE HYDROCHLORIDE [Suspect]
     Active Substance: PYRIDOXINE HYDROCHLORIDE
     Route: 065
  166. PYRIDOXINE HYDROCHLORIDE [Suspect]
     Active Substance: PYRIDOXINE HYDROCHLORIDE
     Route: 065
  167. RIBOFLAVIN [Suspect]
     Active Substance: RIBOFLAVIN
     Indication: Product used for unknown indication
     Route: 065
  168. TELMISARTAN [Suspect]
     Active Substance: TELMISARTAN
     Route: 065
  169. TELMISARTAN [Suspect]
     Active Substance: TELMISARTAN
     Route: 065
  170. TELMISARTAN [Suspect]
     Active Substance: TELMISARTAN
     Indication: Glaucoma
     Route: 065
  171. TELMISARTAN [Suspect]
     Active Substance: TELMISARTAN
     Indication: Hypertension
     Route: 065
  172. TELMISARTAN [Suspect]
     Active Substance: TELMISARTAN
     Route: 065
  173. TELMISARTAN [Suspect]
     Active Substance: TELMISARTAN
     Route: 065
  174. TELMISARTAN [Suspect]
     Active Substance: TELMISARTAN
     Route: 065
  175. TELMISARTAN [Suspect]
     Active Substance: TELMISARTAN
     Route: 065
  176. TELMISARTAN [Suspect]
     Active Substance: TELMISARTAN
     Route: 065
  177. TELMISARTAN [Suspect]
     Active Substance: TELMISARTAN
     Route: 065
  178. TELMISARTAN [Suspect]
     Active Substance: TELMISARTAN
     Route: 065
  179. TELMISARTAN [Suspect]
     Active Substance: TELMISARTAN
     Route: 065
  180. THIAMINE HYDROCHLORIDE [Suspect]
     Active Substance: THIAMINE HYDROCHLORIDE
     Indication: Product used for unknown indication
     Route: 065
  181. VITAMIN C [Suspect]
     Active Substance: ASCORBIC ACID
     Indication: Product used for unknown indication
     Route: 065
  182. VITAMIN A [Suspect]
     Active Substance: VITAMIN A
     Indication: Product used for unknown indication
     Route: 065
  183. VITAMIN B6 [Suspect]
     Active Substance: PYRIDOXINE HYDROCHLORIDE
     Indication: Product used for unknown indication
     Route: 065
  184. VITAMIN D3 [Suspect]
     Active Substance: CHOLECALCIFEROL
     Indication: Product used for unknown indication
     Route: 065
  185. VITAMIN D3 [Suspect]
     Active Substance: CHOLECALCIFEROL
     Route: 065
  186. VITAMIN D3 [Suspect]
     Active Substance: CHOLECALCIFEROL
     Route: 065
  187. VITAMIN D3 [Suspect]
     Active Substance: CHOLECALCIFEROL
     Route: 065
  188. VITAMIN D3 [Suspect]
     Active Substance: CHOLECALCIFEROL
     Route: 065
  189. VITAMIN D3 [Suspect]
     Active Substance: CHOLECALCIFEROL
     Route: 065
  190. VITAMIN D3 [Suspect]
     Active Substance: CHOLECALCIFEROL
     Route: 065
  191. VITAMIN D3 [Suspect]
     Active Substance: CHOLECALCIFEROL
     Route: 065
  192. VITAMIN D3 [Suspect]
     Active Substance: CHOLECALCIFEROL
     Route: 065
  193. VITAMIN D3 [Suspect]
     Active Substance: CHOLECALCIFEROL
     Route: 065
  194. VITAMIN D3 [Suspect]
     Active Substance: CHOLECALCIFEROL
     Route: 065
  195. VITAMIN D3 [Suspect]
     Active Substance: CHOLECALCIFEROL
     Route: 065
  196. VITAMIN D3 [Suspect]
     Active Substance: CHOLECALCIFEROL
     Route: 065
  197. VITAMIN D3 [Suspect]
     Active Substance: CHOLECALCIFEROL
     Route: 065
  198. VITAMINS NOS [Suspect]
     Active Substance: VITAMINS
     Indication: Product used for unknown indication
     Route: 065
  199. VITAMINS NOS [Suspect]
     Active Substance: VITAMINS
     Route: 065
  200. VITAMINS NOS [Suspect]
     Active Substance: VITAMINS
     Route: 065
  201. VITAMINS NOS [Suspect]
     Active Substance: VITAMINS
     Route: 065
  202. VITAMINS NOS [Suspect]
     Active Substance: VITAMINS
     Route: 065
  203. VITAMINS NOS [Suspect]
     Active Substance: VITAMINS
     Route: 065
  204. VITAMINS NOS [Suspect]
     Active Substance: VITAMINS
     Route: 065
  205. ZOPICLONE [Suspect]
     Active Substance: ZOPICLONE
     Route: 065
  206. ZOPICLONE [Suspect]
     Active Substance: ZOPICLONE
     Route: 065
  207. ZOPICLONE [Suspect]
     Active Substance: ZOPICLONE
     Indication: Sinusitis
     Route: 065
  208. ZOPICLONE [Suspect]
     Active Substance: ZOPICLONE
     Route: 065
  209. ZOPICLONE [Suspect]
     Active Substance: ZOPICLONE
     Indication: Arthralgia
     Route: 065
  210. ZOPICLONE [Suspect]
     Active Substance: ZOPICLONE
     Indication: Dyslipidaemia
     Route: 065
  211. ZOPICLONE [Suspect]
     Active Substance: ZOPICLONE
     Indication: Osteoarthritis
     Route: 065
  212. ZOPICLONE [Suspect]
     Active Substance: ZOPICLONE
     Route: 065
  213. ZOPICLONE [Suspect]
     Active Substance: ZOPICLONE
     Route: 065
  214. ZOPICLONE [Suspect]
     Active Substance: ZOPICLONE
     Route: 065
  215. ZOPICLONE [Suspect]
     Active Substance: ZOPICLONE
     Route: 065
  216. ZOPICLONE [Suspect]
     Active Substance: ZOPICLONE
     Route: 065
  217. ZOPICLONE [Suspect]
     Active Substance: ZOPICLONE
     Route: 065
  218. ZOPICLONE [Suspect]
     Active Substance: ZOPICLONE
     Route: 065
  219. ZOPICLONE [Suspect]
     Active Substance: ZOPICLONE
     Indication: Insomnia
     Route: 048
  220. ACETAMINOPHEN [Concomitant]
     Active Substance: ACETAMINOPHEN
     Indication: Product used for unknown indication
     Route: 065
  221. ACETAMINOPHEN\PSEUDOEPHEDRINE [Concomitant]
     Active Substance: ACETAMINOPHEN\PSEUDOEPHEDRINE
     Indication: Product used for unknown indication
     Route: 065
  222. AMOXICILLIN [Concomitant]
     Active Substance: AMOXICILLIN
     Indication: Product used for unknown indication
     Route: 065
  223. ATORVASTATIN CALCIUM [Concomitant]
     Active Substance: ATORVASTATIN CALCIUM
     Indication: Dyslipidaemia
     Route: 065
  224. CALCIUM CARBONATE [Concomitant]
     Active Substance: CALCIUM CARBONATE
     Indication: Product used for unknown indication
     Route: 065
  225. CALCIUM CARBONATE [Concomitant]
     Active Substance: CALCIUM CARBONATE
     Route: 065
  226. CHOLECALCIFEROL [Concomitant]
     Active Substance: CHOLECALCIFEROL
     Route: 065
  227. CHOLECALCIFEROL [Concomitant]
     Active Substance: CHOLECALCIFEROL
     Route: 065
  228. CHOLECALCIFEROL [Concomitant]
     Active Substance: CHOLECALCIFEROL
     Indication: Product used for unknown indication
     Route: 065
  229. CLONAZEPAM [Concomitant]
     Active Substance: CLONAZEPAM
     Indication: Product used for unknown indication
     Route: 065
  230. DICLOFENAC [Concomitant]
     Active Substance: DICLOFENAC
     Indication: Product used for unknown indication
     Route: 065
  231. ESTRADIOL [Concomitant]
     Active Substance: ESTRADIOL
     Indication: Menopausal symptoms
     Route: 065
  232. ESTRADIOL [Concomitant]
     Active Substance: ESTRADIOL
     Route: 065
  233. IBUPROFEN [Concomitant]
     Active Substance: IBUPROFEN
     Indication: Product used for unknown indication
     Route: 065
  234. IBUPROFEN [Concomitant]
     Active Substance: IBUPROFEN
     Indication: Arthralgia
  235. IPRATROPIUM [Concomitant]
     Active Substance: IPRATROPIUM
     Indication: Rhinitis
     Route: 045
  236. IPRATROPIUM [Concomitant]
     Active Substance: IPRATROPIUM
     Route: 045
  237. IPRATROPIUM [Concomitant]
     Active Substance: IPRATROPIUM
     Route: 065
  238. IPRATROPIUM BROMIDE [Concomitant]
     Active Substance: IPRATROPIUM BROMIDE
     Indication: Rhinitis
     Route: 045
  239. LATANOPROST [Concomitant]
     Active Substance: LATANOPROST
     Indication: Glaucoma
     Route: 047
  240. LATANOPROST [Concomitant]
     Active Substance: LATANOPROST
     Route: 047
  241. LATANOPROST [Concomitant]
     Active Substance: LATANOPROST
     Route: 047
  242. LATANOPROST [Concomitant]
     Active Substance: LATANOPROST
     Route: 065
  243. NAPROXEN SODIUM [Concomitant]
     Active Substance: NAPROXEN SODIUM
     Indication: Arthralgia
     Route: 065
  244. OXYCODONE [Concomitant]
     Active Substance: OXYCODONE
     Indication: Product used for unknown indication
     Route: 065
  245. ACETAMINOPHEN\PSEUDOEPHEDRINE [Concomitant]
     Active Substance: ACETAMINOPHEN\PSEUDOEPHEDRINE
     Indication: Product used for unknown indication
     Route: 065
  246. PYRIDOXINE [Concomitant]
     Active Substance: PYRIDOXINE
     Indication: Product used for unknown indication
     Route: 065
  247. PYRIDOXINE [Concomitant]
     Active Substance: PYRIDOXINE
     Route: 065
  248. PYRIDOXINE [Concomitant]
     Active Substance: PYRIDOXINE
     Route: 065
  249. PYRIDOXINE HYDROCHLORIDE [Concomitant]
     Active Substance: PYRIDOXINE HYDROCHLORIDE
     Indication: Product used for unknown indication
     Route: 065
  250. PYRIDOXINE HYDROCHLORIDE [Concomitant]
     Active Substance: PYRIDOXINE HYDROCHLORIDE
     Route: 065
  251. TELMISARTAN [Concomitant]
     Active Substance: TELMISARTAN
     Indication: Hypertension
     Route: 065
  252. TELMISARTAN [Concomitant]
     Active Substance: TELMISARTAN
     Route: 065
  253. VITAMINS NOS [Concomitant]
     Active Substance: VITAMINS
     Indication: Product used for unknown indication
     Route: 065

REACTIONS (8)
  - Haemoglobin decreased [Recovered/Resolved]
  - Nikolsky^s sign test [Recovered/Resolved]
  - Rash papular [Recovered/Resolved]
  - Rash erythematous [Recovered/Resolved]
  - Epidermal necrosis [Recovered/Resolved]
  - Toxic epidermal necrolysis [Recovered/Resolved]
  - Product use in unapproved indication [Recovered/Resolved]
  - Off label use [Recovered/Resolved]
